FAERS Safety Report 4828897-1 (Version None)
Quarter: 2005Q4

REPORT INFORMATION
  Report Type: 
  Country: None (occurrence: None)
  Receive Date: 20051114
  Receipt Date: 20051114
  Transmission Date: 20060501
  Serious: Yes (Death, Hospitalization)
  Sender: FDA-Public Use
  Company Number: None

PATIENT
  Sex: Female
  Weight: 51.2 kg

DRUGS (3)
  1. CYTARABINE [Suspect]
     Indication: ACUTE MYELOID LEUKAEMIA
     Dosage: SEE IMAGE
     Dates: start: 20050916, end: 20050923
  2. DAUNORUBICIN [Suspect]
     Dosage: SEE IMAGE
     Dates: start: 20050916, end: 20050920
  3. ETOPOSIDE [Suspect]
     Dosage: SEE IMAGE
     Dates: start: 20050916, end: 20050920

REACTIONS (7)
  - ASPERGILLOSIS [None]
  - CRYPTOGENIC ORGANIZING PNEUMONIA [None]
  - HAEMORRHAGE [None]
  - INFLAMMATION [None]
  - LUNG NEOPLASM [None]
  - PNEUMONIA FUNGAL [None]
  - RESPIRATORY DISTRESS [None]
